FAERS Safety Report 17055128 (Version 2)
Quarter: 2019Q4

REPORT INFORMATION
  Report Type: Report from Study
  Country: US (occurrence: US)
  Receive Date: 20191120
  Receipt Date: 20191126
  Transmission Date: 20200122
  Serious: Yes (Hospitalization)
  Sender: FDA-Public Use
  Company Number: US-BAYER-2019-208066

PATIENT
  Age: 71 Year
  Sex: Female
  Weight: 96.96 kg

DRUGS (3)
  1. ADEMPAS [Suspect]
     Active Substance: RIOCIGUAT
     Indication: PULMONARY ARTERIAL HYPERTENSION
     Dosage: 2.5 MG, TID
     Route: 048
  2. ADEMPAS [Suspect]
     Active Substance: RIOCIGUAT
     Indication: PULMONARY ARTERIAL HYPERTENSION
     Dosage: UNK
     Dates: start: 20190626
  3. UPTRAVI [Suspect]
     Active Substance: SELEXIPAG
     Dosage: UNK

REACTIONS (4)
  - Diarrhoea [Unknown]
  - Hypotension [Unknown]
  - Hospitalisation [None]
  - Drug intolerance [None]

NARRATIVE: CASE EVENT DATE: 2019
